FAERS Safety Report 5264664-5 (Version None)
Quarter: 2007Q1

REPORT INFORMATION
  Report Type: 
  Country: None (occurrence: None)
  Receive Date: 20070314
  Receipt Date: 20070306
  Transmission Date: 20070707
  Serious: Yes (Death)
  Sender: FDA-Public Use
  Company Number: IL-JNJFOC-20070206284

PATIENT
  Age: 59 Year
  Sex: Male

DRUGS (4)
  1. RISPERDAL [Suspect]
     Indication: SCHIZOPHRENIA, RESIDUAL TYPE
     Route: 048
  2. ENTUMIN [Concomitant]
  3. ASSIVAL [Concomitant]
  4. OINTMENT [Concomitant]
     Indication: DERMATITIS

REACTIONS (1)
  - DEATH [None]
